FAERS Safety Report 19700905 (Version 2)
Quarter: 2021Q4

REPORT INFORMATION
  Report Type: Spontaneous
  Country: US (occurrence: US)
  Receive Date: 20210813
  Receipt Date: 20211122
  Transmission Date: 20220303
  Serious: No
  Sender: FDA-Public Use
  Company Number: US-BRISTOL-MYERS SQUIBB COMPANY-BMS-2021-080133

PATIENT
  Age: 62 Year
  Sex: Female

DRUGS (2)
  1. ORENCIA [Suspect]
     Active Substance: ABATACEPT
     Indication: Polyarthritis
     Dosage: 125 MILLIGRAM, QWK
     Route: 058
     Dates: start: 202003
  2. ORENCIA [Suspect]
     Active Substance: ABATACEPT
     Indication: Polyarthritis
     Dosage: 125 MILLIGRAM, QWK
     Route: 058
     Dates: start: 202003

REACTIONS (2)
  - Joint swelling [Unknown]
  - Arthralgia [Unknown]
